FAERS Safety Report 18277483 (Version 1)
Quarter: 2020Q3

REPORT INFORMATION
  Report Type: Other
  Country: IN (occurrence: IN)
  Receive Date: 20200917
  Receipt Date: 20200917
  Transmission Date: 20201103
  Serious: Yes (Other)
  Sender: FDA-Public Use
  Company Number: IN-GUARDIAN DRUG COMPANY-2090843

PATIENT
  Age: 42 Year
  Sex: Female

DRUGS (3)
  1. CHILDRENS IBUPROFEN [Suspect]
     Active Substance: IBUPROFEN
     Indication: BACK PAIN
     Route: 065
  2. NIMESULIDE [Suspect]
     Active Substance: NIMESULIDE
     Route: 065
  3. DICLOFENAC [Suspect]
     Active Substance: DICLOFENAC
     Route: 065

REACTIONS (1)
  - Angioedema [Unknown]
